FAERS Safety Report 20791399 (Version 4)
Quarter: 2023Q1

REPORT INFORMATION
  Report Type: Spontaneous
  Country: US (occurrence: US)
  Receive Date: 20220505
  Receipt Date: 20230210
  Transmission Date: 20230417
  Serious: No
  Sender: FDA-Public Use
  Company Number: US-PFIZER INC-2019115589

PATIENT
  Age: 66 Year
  Sex: Female
  Weight: 56.236 kg

DRUGS (8)
  1. XELJANZ XR [Suspect]
     Active Substance: TOFACITINIB CITRATE
     Indication: Systemic scleroderma
     Dosage: 11 MG, DAILY
     Route: 048
     Dates: start: 2016
  2. XELJANZ XR [Suspect]
     Active Substance: TOFACITINIB CITRATE
     Indication: Rheumatoid arthritis
     Dosage: ONE TABLET BY MOUTH EVERY OTHER DAY
     Route: 048
     Dates: start: 2016
  3. MINERALS\VITAMINS [Concomitant]
     Active Substance: MINERALS\VITAMINS
     Route: 048
  4. CALCIUM\CHOLECALCIFEROL [Concomitant]
     Active Substance: CALCIUM\CHOLECALCIFEROL
     Dosage: 1 DF, 1X/DAY (WITH A MEAL)
     Route: 048
  5. LUTEIN [Concomitant]
     Active Substance: LUTEIN
     Dosage: 1 DF, ALTERNATE DAY (WITH A MEAL)
     Route: 048
  6. SIMVASTATIN [Concomitant]
     Active Substance: SIMVASTATIN
     Dosage: 1 DF, 1X/DAY (EVERY EVENING)
  7. IBANDRONATE SODIUM [Concomitant]
     Active Substance: IBANDRONATE SODIUM
     Dosage: 1 DF, MONTHLY
     Route: 048
     Dates: start: 201906
  8. BONIVA [Concomitant]
     Active Substance: IBANDRONATE SODIUM
     Dosage: 150 MG, MONTHLY

REACTIONS (6)
  - Liver function test abnormal [Recovering/Resolving]
  - Weight decreased [Unknown]
  - Blood urea nitrogen/creatinine ratio increased [Unknown]
  - Blood sodium decreased [Unknown]
  - Red blood cell sedimentation rate increased [Unknown]
  - Off label use [Unknown]

NARRATIVE: CASE EVENT DATE: 20160101
